FAERS Safety Report 8631995 (Version 2)
Quarter: 2012Q4

REPORT INFORMATION
  Report Type: 
  Country: FR (occurrence: FR)
  Receive Date: 20120625
  Receipt Date: 20120904
  Transmission Date: 20130627
  Serious: No
  Sender: FDA-Public Use
  Company Number: FR-JNJFOC-20120607911

PATIENT
  Age: 73 Year
  Sex: Male
  Weight: 95 kg

DRUGS (2)
  1. ZYTIGA [Suspect]
     Indication: PROSTATE CANCER METASTATIC
     Dosage: 4 tablets of 250 mg a day
     Route: 048
     Dates: start: 20120330, end: 20120510
  2. SOLUPRED [Concomitant]
     Indication: PROPHYLAXIS
     Route: 048
     Dates: start: 20120330, end: 20120510

REACTIONS (1)
  - Urticaria [Recovered/Resolved]
